FAERS Safety Report 8728355 (Version 2)
Quarter: 2012Q4

REPORT INFORMATION
  Report Type: Spontaneous
  Country: US (occurrence: None)
  Receive Date: 20120731
  Receipt Date: 20120925
  Transmission Date: 20130627
  Serious: Yes (Other)
  Sender: FDA-Public Use
  Company Number: JPI-P-022965

PATIENT
  Age: 77 Year
  Sex: Male

DRUGS (5)
  1. XYREM [Suspect]
     Indication: NARCOLEPSY
     Route: 048
     Dates: start: 20090119, end: 20090319
  2. XYREM [Suspect]
     Indication: NARCOLEPSY
     Dosage: ORAL ; ORAL ; 6 GM (3 GM,2 IN 1 D),ORAL
     Route: 048
     Dates: start: 20120413, end: 2012
  3. XYREM [Suspect]
     Indication: NARCOLEPSY
     Dosage: (3 GM,2 IN 1 D)
     Route: 048
     Dates: start: 2012
  4. METHYLPHENIDATE [Concomitant]
  5. PREDNISONE [Concomitant]

REACTIONS (4)
  - Thrombosis [None]
  - Asthenia [None]
  - Dyspnoea [None]
  - Haemolytic anaemia [None]
